FAERS Safety Report 6057771-0 (Version None)
Quarter: 2009Q1

REPORT INFORMATION
  Report Type: 
  Country: None (occurrence: None)
  Receive Date: 20090129
  Receipt Date: 20090121
  Transmission Date: 20090719
  Serious: Yes (Other)
  Sender: FDA-Public Use
  Company Number: PHHY2009DE02904

PATIENT
  Age: 9 Year
  Sex: Male

DRUGS (1)
  1. RITALIN LA [Suspect]
     Dosage: 20 MG, UNK
     Route: 048
     Dates: start: 20080920, end: 20081014

REACTIONS (1)
  - EXTRAPYRAMIDAL DISORDER [None]
